FAERS Safety Report 10426231 (Version 1)
Quarter: 2014Q3

REPORT INFORMATION
  Report Type: Not Available
  Country: US (occurrence: US)
  Receive Date: 20140903
  Receipt Date: 20140903
  Transmission Date: 20150326
  Serious: Yes (Other)
  Sender: FDA-Public Use
  Company Number: US-LUPIN PHARMACEUTICALS INC.-E2B_00002413

PATIENT
  Age: 4 Year
  Sex: Female
  Weight: 14.53 kg

DRUGS (5)
  1. CEPHALEXIN FOR ORAL SUSPENSION USP 125 MG/5 ML [Suspect]
     Active Substance: CEPHALEXIN
     Indication: PHARYNGITIS STREPTOCOCCAL
     Dosage: 450MG
     Dates: start: 20140820
  2. CEPHALEXIN FOR ORAL SUSPENSION USP 250 MG/5 ML [Suspect]
     Active Substance: CEPHALEXIN
     Indication: PHARYNGITIS STREPTOCOCCAL
     Dates: start: 201408, end: 20140815
  3. CEPHALEXIN FOR ORAL SUSPENSION USP 250 MG/5 ML [Suspect]
     Active Substance: CEPHALEXIN
     Indication: PYREXIA
  4. MOTRIN [Concomitant]
     Active Substance: IBUPROFEN
     Indication: PYREXIA
     Route: 065
  5. INSULIN [Concomitant]
     Active Substance: INSULIN NOS
     Indication: DIABETES MELLITUS
     Route: 065

REACTIONS (3)
  - Pyrexia [Recovered/Resolved]
  - Blood glucose increased [Unknown]
  - Disease recurrence [None]

NARRATIVE: CASE EVENT DATE: 201408
